FAERS Safety Report 5289517-8 (Version None)
Quarter: 2007Q2

REPORT INFORMATION
  Report Type: 
  Country: None (occurrence: None)
  Receive Date: 20070406
  Receipt Date: 20070327
  Transmission Date: 20071010
  Serious: Yes (Other)
  Sender: FDA-Public Use
  Company Number: HQWYE006128MAR07

PATIENT
  Age: 67 Year
  Sex: Male

DRUGS (3)
  1. NEUMEGA [Suspect]
     Indication: THROMBOCYTOPENIA
     Dosage: 30 MCG/KG ONCE DAILY
     Route: 058
     Dates: start: 20070322, end: 20070327
  2. NEUMEGA [Suspect]
     Indication: PROPHYLAXIS
  3. ETOPOSIDE [Concomitant]
     Indication: ACUTE LYMPHOCYTIC LEUKAEMIA
     Dosage: UNKNOWN
     Route: 065

REACTIONS (3)
  - DYSPNOEA [None]
  - OEDEMA [None]
  - WEIGHT INCREASED [None]
